FAERS Safety Report 5785702-7 (Version None)
Quarter: 2008Q2

REPORT INFORMATION
  Report Type: 
  Country: None (occurrence: None)
  Receive Date: 20080605
  Receipt Date: 20080222
  Transmission Date: 20081010
  Serious: No
  Sender: FDA-Public Use
  Company Number: A0711289A

PATIENT
  Age: 75 Year
  Sex: Male

DRUGS (1)
  1. ALLI [Suspect]
     Dates: end: 20080215

REACTIONS (2)
  - ARTHRALGIA [None]
  - BACK PAIN [None]
